APPROVED DRUG PRODUCT: LOPRESSOR
Active Ingredient: METOPROLOL TARTRATE
Strength: 10MG/ML
Dosage Form/Route: SOLUTION;ORAL
Application: N219373 | Product #001
Applicant: RUBICON RESEARCH LTD
Approved: Apr 10, 2025 | RLD: Yes | RS: Yes | Type: RX